FAERS Safety Report 17356949 (Version 1)
Quarter: 2020Q1

REPORT INFORMATION
  Report Type: Spontaneous
  Country: US (occurrence: US)
  Receive Date: 20200131
  Receipt Date: 20200131
  Transmission Date: 20200409
  Serious: No
  Sender: FDA-Public Use
  Company Number: US-HORIZON-VIM-0006-2020

PATIENT
  Age: 58 Year
  Sex: Female

DRUGS (1)
  1. VIMOVO [Suspect]
     Active Substance: ESOMEPRAZOLE MAGNESIUM\NAPROXEN
     Indication: ARTHRALGIA
     Dosage: 1 TAB BID
     Route: 048
     Dates: start: 20200123, end: 20200124

REACTIONS (2)
  - Drug ineffective [Unknown]
  - Rash macular [Unknown]

NARRATIVE: CASE EVENT DATE: 202001
